FAERS Safety Report 14180890 (Version 1)
Quarter: 2017Q4

REPORT INFORMATION
  Report Type: Spontaneous
  Country: US (occurrence: US)
  Receive Date: 20171110
  Receipt Date: 20171110
  Transmission Date: 20180321
  Serious: Yes (Life-Threatening, Other)
  Sender: FDA-Public Use
  Company Number: US-LUNDBECK-DKLU2039775

PATIENT
  Age: 11 Year
  Sex: Male

DRUGS (4)
  1. LEVOCETIRIZINE [Concomitant]
     Active Substance: LEVOCETIRIZINE
     Indication: PRODUCT USED FOR UNKNOWN INDICATION
     Route: 065
  2. DEPAKOTE [Concomitant]
     Active Substance: DIVALPROEX SODIUM
     Indication: PRODUCT USED FOR UNKNOWN INDICATION
     Route: 065
  3. ONFI [Suspect]
     Active Substance: CLOBAZAM
     Route: 048
  4. ONFI [Suspect]
     Active Substance: CLOBAZAM
     Indication: EPILEPSY
     Route: 048

REACTIONS (5)
  - Withdrawal syndrome [Unknown]
  - Product quality issue [Unknown]
  - Drug ineffective [Unknown]
  - Drug dependence [Unknown]
  - Status epilepticus [Recovering/Resolving]

NARRATIVE: CASE EVENT DATE: 20171016
